FAERS Safety Report 13747917 (Version 2)
Quarter: 2017Q3

REPORT INFORMATION
  Report Type: Report from Study
  Country: US (occurrence: US)
  Receive Date: 20170713
  Receipt Date: 20170928
  Transmission Date: 20171127
  Serious: Yes (Other)
  Sender: FDA-Public Use
  Company Number: US-TORRENT-00003170

PATIENT
  Age: 66 Year
  Sex: Female

DRUGS (3)
  1. LAMOTRIGINE. [Suspect]
     Active Substance: LAMOTRIGINE
  2. LEVETIRACETAM. [Concomitant]
     Active Substance: LEVETIRACETAM
  3. PREGABALIN. [Concomitant]
     Active Substance: PREGABALIN

REACTIONS (8)
  - Delirium [Unknown]
  - Agitation [Unknown]
  - Toxicity to various agents [Recovered/Resolved]
  - Vomiting [Unknown]
  - Pyrexia [Unknown]
  - Confusional state [Unknown]
  - Headache [Unknown]
  - Diarrhoea [Unknown]
